FAERS Safety Report 19421832 (Version 1)
Quarter: 2021Q2

REPORT INFORMATION
  Report Type: Spontaneous
  Country: US (occurrence: US)
  Receive Date: 20210616
  Receipt Date: 20210616
  Transmission Date: 20210717
  Serious: No
  Sender: FDA-Public Use
  Company Number: US-ENCUBE-000086

PATIENT
  Age: 83 Year
  Sex: Female

DRUGS (5)
  1. TYLENOL [Concomitant]
     Active Substance: ACETAMINOPHEN
     Indication: PRODUCT USED FOR UNKNOWN INDICATION
     Dosage: SOMETIMES THE PATIENT TAKES IT.
  2. NORCO (HYDROCODONE) [Concomitant]
     Indication: BACK PAIN
     Dosage: ONE AND A HALF TABLET EVERY DAY IN EARLY MORNING BETWEEN AT 8 TO 10 AM.
  3. LEVOXINE [Concomitant]
     Active Substance: LEVOTHYROXINE SODIUM
     Indication: THYROID DISORDER
     Dosage: 88 MG TABLET A DAY.
  4. LISINOPRIL. [Concomitant]
     Active Substance: LISINOPRIL
     Indication: HYPERTENSION
     Dosage: 5 TIMES A DAY.
  5. DICLOFENAC SODIUM TOPICAL GEL 1% [Suspect]
     Active Substance: DICLOFENAC SODIUM
     Indication: BACK PAIN
     Dosage: APPLIED 2 GRAMS OF DICLOFENAC SODIUM GEL ON THE LOWER BACK, ONLY ONE TIME .
     Route: 061
     Dates: start: 20210523, end: 20210523

REACTIONS (6)
  - Throat tightness [Recovered/Resolved]
  - Muscle tightness [Recovered/Resolved]
  - Eye disorder [Recovered/Resolved]
  - Off label use [Unknown]
  - Confusional state [Recovered/Resolved]
  - Eye colour change [Recovered/Resolved]
